FAERS Safety Report 19706974 (Version 1)
Quarter: 2021Q3

REPORT INFORMATION
  Report Type: Spontaneous
  Country: US (occurrence: US)
  Receive Date: 20210816
  Receipt Date: 20210816
  Transmission Date: 20211014
  Serious: No
  Sender: FDA-Public Use
  Company Number: None

PATIENT
  Age: 91 Year
  Sex: Female
  Weight: 54 kg

DRUGS (8)
  1. VITAMIN B12 [Concomitant]
     Active Substance: CYANOCOBALAMIN
  2. BIOTIN 5000 [Concomitant]
  3. LORAZEPAM. [Concomitant]
     Active Substance: LORAZEPAM
  4. VITAMIN C [Concomitant]
     Active Substance: ASCORBIC ACID
  5. IMATINIB. [Suspect]
     Active Substance: IMATINIB MESYLATE
     Indication: CHRONIC MYELOID LEUKAEMIA
     Dosage: ?          OTHER FREQUENCY:EVERY OTHER DAY;?
     Route: 048
     Dates: start: 20140717
  6. HYDROCHLOROTHIAZIDE. [Concomitant]
     Active Substance: HYDROCHLOROTHIAZIDE
  7. METOPROLOL. [Concomitant]
     Active Substance: METOPROLOL
  8. VITAMIN D3 [Concomitant]
     Active Substance: CHOLECALCIFEROL

REACTIONS (1)
  - Tinnitus [None]

NARRATIVE: CASE EVENT DATE: 20210816
